FAERS Safety Report 11078769 (Version 4)
Quarter: 2015Q2

REPORT INFORMATION
  Report Type: Spontaneous
  Country: US (occurrence: US)
  Receive Date: 20150430
  Receipt Date: 20150630
  Transmission Date: 20150821
  Serious: Yes (Hospitalization, Other)
  Sender: FDA-Public Use
  Company Number: US-PFIZER INC-2015133193

PATIENT
  Age: 64 Year
  Sex: Female

DRUGS (20)
  1. HYDROCHLOROTHIAZIDE. [Concomitant]
     Active Substance: HYDROCHLOROTHIAZIDE
     Dosage: 12.5 MG, 1X/DAY
     Route: 048
  2. DUONEB [Concomitant]
     Active Substance: ALBUTEROL SULFATE\IPRATROPIUM BROMIDE
     Dosage: 4X/DAY (2.5 MG-0.5 MG/3 ML SOLUTION 3 ML 4 TIMES A DAY)
  3. CLARITIN-D 12 HOUR [Concomitant]
     Active Substance: LORATADINE\PSEUDOEPHEDRINE SULFATE
     Dosage: AS NEEDED (10 MG-240 MG, EXTENDED RELEASE 1 TAB(S) DAILY/AS NEEDED)
  4. LORAZEPAM. [Concomitant]
     Active Substance: LORAZEPAM
     Dosage: 0.5 MG, AS NEEDED (1 TAB 1TAB TWO TIMES A DAY TAKING ONCE PER DAY UNLESS NEEDED)
     Route: 048
  5. PANTOPRAZOLE [Concomitant]
     Active Substance: PANTOPRAZOLE SODIUM
     Dosage: 40 MG, 1TAB TWO TIMES A DAY
  6. PREMARIN [Suspect]
     Active Substance: ESTROGENS, CONJUGATED
     Indication: OESTROGEN REPLACEMENT THERAPY
     Dosage: UNK
     Dates: start: 20140820, end: 20140823
  7. HYDROCHLOROTHIAZIDE. [Concomitant]
     Active Substance: HYDROCHLOROTHIAZIDE
     Dosage: UNK
     Dates: end: 20150515
  8. CLARITIN [Concomitant]
     Active Substance: LORATADINE
     Dosage: 40 MG, AS NEEDED
     Route: 048
  9. PREMARIN [Suspect]
     Active Substance: ESTROGENS, CONJUGATED
     Indication: MENOPAUSAL SYMPTOMS
     Dosage: 0.625 MG, 1X/DAY
  10. PREMARIN [Suspect]
     Active Substance: ESTROGENS, CONJUGATED
     Dosage: 1 G, 1X/DAY(0.625MG/G CREAM WITH APPLICATOR 1 G ONCE DAILY FOR A WEEK THEN TWICE A WEEK THEREAFTER)
     Route: 067
     Dates: start: 20140731
  11. PROTONIX [Concomitant]
     Active Substance: PANTOPRAZOLE SODIUM
     Dosage: 40 MG, 2X/DAY
     Route: 048
  12. PROAIR HFA [Concomitant]
     Active Substance: ALBUTEROL SULFATE
     Indication: DYSPNOEA
  13. PREMARIN [Suspect]
     Active Substance: ESTROGENS, CONJUGATED
     Dosage: 1 G, 2X/WEEK
     Dates: end: 20140823
  14. POTASSIUM [Concomitant]
     Active Substance: POTASSIUM
     Dosage: UNK
  15. PROAIR HFA [Concomitant]
     Active Substance: ALBUTEROL SULFATE
     Indication: WHEEZING
     Dosage: UNK, AS NEEDED (2 PUFF(S) Q 4-6HR AS NEEDED)
  16. KETOCONAZOLE. [Concomitant]
     Active Substance: KETOCONAZOLE
     Dosage: 1 DF, AS NEEDED (1 APP ONCE A DAY AS NEEDED)
  17. OXYGEN. [Concomitant]
     Active Substance: OXYGEN
     Dosage: UNK
  18. PREMARIN [Suspect]
     Active Substance: ESTROGENS, CONJUGATED
     Dosage: 0.625 MG, 1X/DAY (1TAB ONCE A DAY)
  19. ZOLOFT [Concomitant]
     Active Substance: SERTRALINE HYDROCHLORIDE
     Dosage: 50 MG, 1X/DAY
     Route: 048
  20. KENALOG [Concomitant]
     Active Substance: TRIAMCINOLONE ACETONIDE
     Dosage: 2X/DAY AS NEEDED

REACTIONS (23)
  - Chest pain [Recovered/Resolved]
  - Malaise [Recovered/Resolved]
  - Lung infiltration [Unknown]
  - Diverticulitis [Unknown]
  - Hypoaesthesia [Unknown]
  - Breast pain [Unknown]
  - Condition aggravated [Recovered/Resolved]
  - Pneumonia [Recovered/Resolved]
  - Cold sweat [Recovered/Resolved]
  - Insomnia [Unknown]
  - Condition aggravated [Recovered/Resolved]
  - Muscle fatigue [Recovered/Resolved]
  - Abdominal discomfort [Recovered/Resolved]
  - Paraesthesia [Recovered/Resolved]
  - Dyspnoea [Unknown]
  - Pain in extremity [Recovered/Resolved]
  - Chest discomfort [Recovered/Resolved]
  - Cardiac disorder [Recovered/Resolved]
  - Fatigue [Recovered/Resolved]
  - Asthenia [Unknown]
  - Poor quality sleep [Recovered/Resolved]
  - Multiple sclerosis [Unknown]
  - Dry skin [Unknown]

NARRATIVE: CASE EVENT DATE: 2010
